FAERS Safety Report 10028275 (Version 1)
Quarter: 2014Q1

REPORT INFORMATION
  Report Type: Spontaneous
  Country: US (occurrence: US)
  Receive Date: 20140321
  Receipt Date: 20140321
  Transmission Date: 20141002
  Serious: No
  Sender: FDA-Public Use
  Company Number: US-009507513-1403USA001486

PATIENT
  Sex: Male
  Weight: 102.4 kg

DRUGS (3)
  1. MIRALAX [Suspect]
     Indication: BOWEL MOVEMENT IRREGULARITY
     Dosage: 17 G, QD
     Route: 048
     Dates: start: 20130401
  2. ONGLYZA [Concomitant]
  3. AZOR (ALPRAZOLAM) [Concomitant]

REACTIONS (2)
  - Incorrect drug administration duration [Unknown]
  - Product quality issue [Unknown]
